FAERS Safety Report 20981633 (Version 3)
Quarter: 2022Q3

REPORT INFORMATION
  Report Type: Report from Study
  Country: CN (occurrence: CN)
  Receive Date: 20220620
  Receipt Date: 20220721
  Transmission Date: 20221027
  Serious: No
  Sender: FDA-Public Use
  Company Number: CN-GLAXOSMITHKLINE-CN2022APC094224

PATIENT

DRUGS (9)
  1. BELIMUMAB [Suspect]
     Active Substance: BELIMUMAB
     Indication: Systemic lupus erythematosus
     Dosage: 480 MG, CYC
     Route: 042
     Dates: start: 20211215
  2. MYCOPHENOLATE MOFETIL [Suspect]
     Active Substance: MYCOPHENOLATE MOFETIL
     Indication: Systemic lupus erythematosus
     Dosage: 500 MG, BID
     Route: 048
     Dates: start: 20170524
  3. BENAZEPRIL HYDROCHLORIDE TABLETS [Concomitant]
     Indication: Systemic lupus erythematosus
     Dosage: 10 MG, QD
     Route: 048
     Dates: start: 20170807
  4. CALCITRIOL SOFT CAPSULES [Concomitant]
     Indication: Prophylaxis
     Dosage: 0.25 UG, QD
     Route: 048
     Dates: start: 20170524
  5. HYDROXYCHLOROQUINE SULFATE [Concomitant]
     Active Substance: HYDROXYCHLOROQUINE SULFATE
     Indication: Systemic lupus erythematosus
     Dosage: 200 MG, BID
     Route: 048
     Dates: start: 20170524
  6. PREDNISONE ACETATE [Concomitant]
     Active Substance: PREDNISONE ACETATE
     Indication: Systemic lupus erythematosus
     Dosage: 10 MG, QD
     Route: 048
     Dates: start: 20200708
  7. CALCIUM CARBONATE AND VITAMIN D3 TABLETS [Concomitant]
     Indication: Osteoporosis prophylaxis
     Dosage: 1 DF, QD
     Route: 048
     Dates: start: 2017
  8. DEXAMETHASONE SODIUM PHOSPHATE [Concomitant]
     Active Substance: DEXAMETHASONE SODIUM PHOSPHATE
     Indication: Prophylaxis
     Dosage: 5 MG, QD
     Route: 050
     Dates: start: 20211215, end: 20211215
  9. LANSOPRAZOLE ENTERIC-COATED TABLETS [Concomitant]
     Indication: Prophylaxis
     Dosage: 30 MG, QD
     Route: 048
     Dates: start: 20211215, end: 20211215

REACTIONS (2)
  - Aspartate aminotransferase increased [Not Recovered/Not Resolved]
  - Alanine aminotransferase increased [Not Recovered/Not Resolved]

NARRATIVE: CASE EVENT DATE: 20220316
